FAERS Safety Report 5517607-0 (Version None)
Quarter: 2007Q4

REPORT INFORMATION
  Report Type: 
  Country: None (occurrence: None)
  Receive Date: 20071114
  Receipt Date: 20071109
  Transmission Date: 20080405
  Serious: Yes (Death, Life-Threatening, Hospitalization, Other)
  Sender: FDA-Public Use
  Company Number: US-ABBOTT-07P-163-0424455-00

PATIENT
  Sex: Female

DRUGS (4)
  1. RITONAVIR SOFT GELATIN CAPSULES [Suspect]
     Indication: HIV INFECTION
     Route: 048
  2. APTIVUS [Suspect]
     Indication: HIV INFECTION
     Route: 048
  3. ENFUVIRTIDE [Concomitant]
     Indication: HIV INFECTION
  4. NRTIS (ALL OTHER THERAPEUTIC PRODUCTS) [Concomitant]
     Indication: HIV INFECTION

REACTIONS (7)
  - ENCEPHALITIS VIRAL [None]
  - FALL [None]
  - GAIT DISTURBANCE [None]
  - HEAD INJURY [None]
  - NERVOUS SYSTEM DISORDER [None]
  - NEUROLOGICAL SYMPTOM [None]
  - RESPIRATORY DISTRESS [None]
